FAERS Safety Report 8054520-1 (Version None)
Quarter: 2012Q1

REPORT INFORMATION
  Report Type: 
  Country: None (occurrence: None)
  Receive Date: 20120118
  Receipt Date: 20120116
  Transmission Date: 20120608
  Serious: Yes (Death)
  Sender: FDA-Public Use
  Company Number: IT-GILEAD-2012-0049328

PATIENT
  Age: 10 Year
  Sex: Male

DRUGS (3)
  1. ACYCLOVIR [Concomitant]
  2. FOSCARNET [Concomitant]
  3. VISTIDE [Suspect]
     Indication: HERPES SIMPLEX

REACTIONS (2)
  - BONE MARROW TOXICITY [None]
  - DRUG INEFFECTIVE FOR UNAPPROVED INDICATION [None]
